FAERS Safety Report 8029879-1 (Version None)
Quarter: 2011Q4

REPORT INFORMATION
  Report Type: 
  Country: None (occurrence: None)
  Receive Date: 20111229
  Receipt Date: 20111229
  Transmission Date: 20120403
  Serious: Yes (Other)
  Sender: FDA-Public Use
  Company Number: None

PATIENT
  Age: 68 Year
  Sex: Female
  Weight: 53.0709 kg

DRUGS (2)
  1. BIOTENE, BIO-ACTIVE ENZYME SYSTEM, REFRESHES WITHOUT BURNING [Suspect]
     Indication: DRY MOUTH
     Dosage: 1 TABLESPOON TWICE/DAY  HAVE USED MORE THAN 2 YEARS
  2. BIOTENE, BIO-ACTIVE ENZYME SYSTEM, REFRESHES WITHOUT BURNING [Suspect]
     Indication: DENTAL DISORDER PROPHYLAXIS
     Dosage: 1 TABLESPOON TWICE/DAY  HAVE USED MORE THAN 2 YEARS

REACTIONS (21)
  - PRODUCT TASTE ABNORMAL [None]
  - URINE ODOUR ABNORMAL [None]
  - STRESS [None]
  - ORAL DISCOMFORT [None]
  - HEADACHE [None]
  - PRODUCT CONTAMINATION [None]
  - ANXIETY [None]
  - FATIGUE [None]
  - DIZZINESS [None]
  - BURNING SENSATION [None]
  - BACK PAIN [None]
  - TOOTH DISORDER [None]
  - CHROMATURIA [None]
  - ABNORMAL FAECES [None]
  - DISCOMFORT [None]
  - PRODUCT QUALITY ISSUE [None]
  - GLOSSODYNIA [None]
  - DYSPEPSIA [None]
  - MULTIPLE INJURIES [None]
  - THROAT IRRITATION [None]
  - HEART RATE IRREGULAR [None]
